FAERS Safety Report 13526713 (Version 1)
Quarter: 2017Q2

REPORT INFORMATION
  Report Type: Report from Study
  Country: CO (occurrence: CO)
  Receive Date: 20170509
  Receipt Date: 20170509
  Transmission Date: 20170830
  Serious: Yes (Hospitalization)
  Sender: FDA-Public Use
  Company Number: PHHY2017CO058336

PATIENT
  Age: 23 Year
  Sex: Female
  Weight: 53 kg

DRUGS (1)
  1. IMATINIB [Suspect]
     Active Substance: IMATINIB
     Indication: CHRONIC MYELOID LEUKAEMIA
     Dosage: UNK
     Route: 065
     Dates: start: 2010, end: 201612

REACTIONS (7)
  - Chronic myeloid leukaemia recurrent [Recovering/Resolving]
  - Hypertension [Recovering/Resolving]
  - Drug ineffective [Unknown]
  - Gait disturbance [Recovering/Resolving]
  - Respiratory disorder [Recovering/Resolving]
  - Pyrexia [Recovering/Resolving]
  - Neutrophil count increased [Unknown]

NARRATIVE: CASE EVENT DATE: 201704
